FAERS Safety Report 5742967-5 (Version None)
Quarter: 2008Q2

REPORT INFORMATION
  Report Type: 
  Country: None (occurrence: None)
  Receive Date: 20080519
  Receipt Date: 20080514
  Transmission Date: 20081010
  Serious: Yes (Death, Other)
  Sender: FDA-Public Use
  Company Number: PHHY2008NL08057

PATIENT
  Sex: Female

DRUGS (1)
  1. EXELON [Suspect]
     Indication: DEMENTIA ALZHEIMER'S TYPE
     Route: 062

REACTIONS (3)
  - DEATH [None]
  - DELIRIUM [None]
  - URINARY TRACT INFECTION [None]
